FAERS Safety Report 6474980 (Version 2)
Quarter: 2012Q4

REPORT INFORMATION
  Report Type: 
  Country: GB (occurrence: GB)
  Receive Date: 20071127
  Receipt Date: 20121211
  Transmission Date: 20130627
  Serious: Yes (Death, Life-Threatening, Hospitalization, Other)
  Sender: FDA-Public Use
  Company Number: PHFR2007GB02037

PATIENT
  Age: 16 Year
  Sex: Female
  Weight: 106 kg

DRUGS (12)
  1. CLOZARIL [Suspect]
     Indication: POST-TRAUMATIC STRESS DISORDER
     Dosage: 300 mg, QD
     Route: 048
     Dates: start: 20070418, end: 20070512
  2. CLOZARIL [Suspect]
     Dosage: 275 mg, QD
     Route: 048
     Dates: start: 20070607, end: 20070703
  3. TRAZODONE [Concomitant]
     Indication: POST-TRAUMATIC STRESS DISORDER
     Dosage: 300 mg, QD
     Route: 048
     Dates: start: 200612, end: 200708
  4. VALPROATE SODIUM [Concomitant]
     Indication: POST-TRAUMATIC STRESS DISORDER
     Dosage: 1200 mg, QD
     Route: 048
     Dates: start: 200512, end: 200708
  5. OLANZAPINE [Concomitant]
     Indication: POST-TRAUMATIC STRESS DISORDER
     Dosage: 20 mg, QD
     Route: 048
     Dates: start: 200510, end: 200708
  6. LORAZEPAM [Concomitant]
     Indication: POST-TRAUMATIC STRESS DISORDER
     Dosage: 4 mg, PRN
     Route: 048
     Dates: start: 200410, end: 200708
  7. IBUPROFEN [Concomitant]
     Dosage: UNK UKN, PRN
     Route: 065
  8. CLOPIXOL /00876701/ [Concomitant]
     Indication: POST-TRAUMATIC STRESS DISORDER
     Dosage: 50 mg, QD
     Route: 030
     Dates: start: 20070605, end: 20070605
  9. CLOPIXOL /00876701/ [Concomitant]
     Dosage: 75 UNK, UNK
     Route: 030
     Dates: start: 20070620, end: 20070620
  10. AUGMENTIN /UNK/ [Concomitant]
     Dosage: UNK
     Route: 065
  11. MEBEVERINE [Concomitant]
     Indication: IRRITABLE BOWEL SYNDROME
     Dosage: 135 mg, TID
     Route: 048
     Dates: start: 200412, end: 200708
  12. CHLORPROMAZINE [Concomitant]
     Indication: POST-TRAUMATIC STRESS DISORDER
     Dosage: 200 mg, PRN
     Route: 048
     Dates: start: 200410, end: 200708

REACTIONS (14)
  - Cardio-respiratory arrest [Fatal]
  - Pulmonary embolism [Fatal]
  - Deep vein thrombosis [Fatal]
  - Pleural effusion [Fatal]
  - Dyspnoea [Fatal]
  - General physical condition [Fatal]
  - Anaemia haemolytic autoimmune [Unknown]
  - Red blood cell count decreased [Unknown]
  - Pallor [Recovered/Resolved]
  - Haemoglobin decreased [Recovering/Resolving]
  - Circulatory collapse [Unknown]
  - Abdominal pain [Unknown]
  - Dysuria [Not Recovered/Not Resolved]
  - White blood cell count increased [Unknown]
